FAERS Safety Report 23472082 (Version 1)
Quarter: 2024Q1

REPORT INFORMATION
  Report Type: Spontaneous
  Country: RU (occurrence: RU)
  Receive Date: 20240202
  Receipt Date: 20240202
  Transmission Date: 20240409
  Serious: Yes (Other)
  Sender: FDA-Public Use
  Company Number: RU-ORGANON-O2402RUS000208

PATIENT
  Age: 13 Year
  Sex: Male

DRUGS (1)
  1. SINGULAIR [Suspect]
     Active Substance: MONTELUKAST SODIUM
     Dosage: UNK
     Route: 065

REACTIONS (5)
  - Drug-induced liver injury [Unknown]
  - Abdominal pain upper [Unknown]
  - Transaminases increased [Unknown]
  - Hepatomegaly [Unknown]
  - Pancreatic enlargement [Unknown]

NARRATIVE: CASE EVENT DATE: 20231201
